FAERS Safety Report 12576143 (Version 2)
Quarter: 2016Q4

REPORT INFORMATION
  Report Type: Report from Study
  Country: US (occurrence: US)
  Receive Date: 20160720
  Receipt Date: 20161111
  Transmission Date: 20170207
  Serious: Yes (Hospitalization)
  Sender: FDA-Public Use
  Company Number: US-PFIZER INC-2016334296

PATIENT
  Age: 84 Year
  Sex: Male
  Weight: 67 kg

DRUGS (18)
  1. CYTARABINE. [Suspect]
     Active Substance: CYTARABINE
     Indication: ACUTE MYELOID LEUKAEMIA
     Dosage: 20 MG/M2, UNK
     Route: 058
     Dates: start: 20160322
  2. VENETOCLAX [Suspect]
     Active Substance: VENETOCLAX
     Dosage: 200 MG, UNK
     Route: 048
     Dates: start: 20160325, end: 20160325
  3. ALLOPURINOL. [Concomitant]
     Active Substance: ALLOPURINOL
     Indication: PROPHYLAXIS
     Dosage: 300 MG, 1 IN 1 D
     Route: 048
     Dates: start: 20160303
  4. PLAVIX [Concomitant]
     Active Substance: CLOPIDOGREL BISULFATE
     Indication: CEREBROVASCULAR ACCIDENT
     Dosage: UNK UNK, 1X/DAY 1 IN 1 D
     Route: 048
     Dates: start: 20160410
  5. SENNA /00142201/ [Concomitant]
     Active Substance: SENNA LEAF
     Indication: CONSTIPATION
     Dosage: 17.2 MG, 1 IN 1 D, AT BED TIME
     Route: 048
     Dates: start: 20160416
  6. COMPAZINE /00013302/ [Concomitant]
     Active Substance: PROCHLORPERAZINE EDISYLATE
     Indication: NAUSEA
     Dosage: 10 MG, AS REQUIRED
     Route: 048
     Dates: start: 20160505
  7. MIDODRINE [Concomitant]
     Active Substance: MIDODRINE
     Indication: HYPOTENSION
     Dosage: 10 MG, 3 IN 1 D
     Route: 048
     Dates: start: 20160411
  8. MIDODRINE [Concomitant]
     Active Substance: MIDODRINE
     Indication: PROPHYLAXIS
  9. SIMVASTIN [Concomitant]
     Active Substance: SIMVASTATIN
     Indication: BLOOD CHOLESTEROL
     Dosage: 20 MG, 1 IN 1 D
     Route: 048
     Dates: start: 1990
  10. DYAZIDE [Concomitant]
     Active Substance: HYDROCHLOROTHIAZIDE\TRIAMTERENE
     Indication: HYPERTENSION
     Dosage: [HYDROCHLOROTHIAZIDE 25 MG]/[TRIAMTERENE 37.5 MG],1 IN 1 D
     Route: 048
     Dates: start: 1990
  11. VENETOCLAX [Suspect]
     Active Substance: VENETOCLAX
     Indication: ACUTE MYELOID LEUKAEMIA
     Dosage: 50 MG, 1 IN 1 D
     Route: 048
     Dates: start: 20160323, end: 20160323
  12. VENETOCLAX [Suspect]
     Active Substance: VENETOCLAX
     Dosage: 100 MG, UNK
     Route: 048
     Dates: start: 20160324, end: 20160324
  13. COLACE [Concomitant]
     Active Substance: DOCUSATE SODIUM
     Indication: CONSTIPATION
     Dosage: 100 MG, TWICE DAILY AS NEEDED
     Route: 048
     Dates: start: 20160416
  14. VENETOCLAX [Suspect]
     Active Substance: VENETOCLAX
     Dosage: 400 MG, UNK
     Route: 048
     Dates: start: 20160325, end: 20160325
  15. HEPARIN [Concomitant]
     Active Substance: HEPARIN SODIUM
     Indication: CEREBROVASCULAR ACCIDENT
     Dosage: 5000 UNIT, 1 IN 8 HRS
     Route: 058
     Dates: start: 20160409
  16. LOSARTAN POTASSIUM. [Concomitant]
     Active Substance: LOSARTAN POTASSIUM
     Indication: HYPERTENSION
     Dosage: 50 MG, 1 IN 1 D
     Route: 048
     Dates: start: 1990
  17. VENETOCLAX [Suspect]
     Active Substance: VENETOCLAX
     Dosage: 600 MG, UNK
     Route: 048
     Dates: start: 20160327
  18. ASPIRIN /00002701/ [Concomitant]
     Active Substance: ASPIRIN
     Indication: CEREBROVASCULAR ACCIDENT
     Dosage: 81 MG, 1 IN 1 D
     Route: 048
     Dates: start: 20160409, end: 20160617

REACTIONS (1)
  - Asthenia [Recovered/Resolved]

NARRATIVE: CASE EVENT DATE: 20160605
